FAERS Safety Report 7812148-X (Version None)
Quarter: 2011Q4

REPORT INFORMATION
  Report Type: 
  Country: None (occurrence: None)
  Receive Date: 20111013
  Receipt Date: 20111010
  Transmission Date: 20120403
  Serious: Yes (Death)
  Sender: FDA-Public Use
  Company Number: PHEH2011US06482

PATIENT
  Sex: Female

DRUGS (7)
  1. GLEEVEC [Suspect]
     Indication: CHRONIC MYELOID LEUKAEMIA
     Dosage: 200 MG, DAILY
     Route: 048
     Dates: start: 20080102, end: 20110914
  2. ACETAMINOPHEN [Concomitant]
     Dosage: UNK
     Route: 065
  3. METOPROLOL TARTRATE [Concomitant]
     Dosage: UNK
     Route: 065
  4. HYDROCODONE BITARTRATE [Concomitant]
     Dosage: UNK
     Route: 065
  5. LIPITOR [Concomitant]
     Dosage: UNK
     Route: 065
  6. ISOSORBIDE MONONITRATE [Concomitant]
     Dosage: UNK
  7. WARFARIN SODIUM [Concomitant]
     Dosage: UNK
     Route: 065

REACTIONS (1)
  - DEATH [None]
